FAERS Safety Report 21524611 (Version 2)
Quarter: 2022Q4

REPORT INFORMATION
  Report Type: Spontaneous
  Country: US (occurrence: US)
  Receive Date: 20221030
  Receipt Date: 20221108
  Transmission Date: 20230112
  Serious: No
  Sender: FDA-Public Use
  Company Number: US-BRISTOL-MYERS SQUIBB COMPANY-2022-087389

PATIENT
  Age: 71 Year
  Sex: Female

DRUGS (1)
  1. REVLIMID [Suspect]
     Active Substance: LENALIDOMIDE
     Indication: Hypergammaglobulinaemia benign monoclonal
     Dosage: 1 DF : 1 CAPSULE?EVERY DAY FOR 21 DAYS EVERY 28 DAYS
     Route: 048

REACTIONS (5)
  - Fatigue [Unknown]
  - Pain [Unknown]
  - Intentional product use issue [Unknown]
  - Constipation [Unknown]
  - Bowel movement irregularity [Unknown]
